FAERS Safety Report 4510617-1 (Version None)
Quarter: 2004Q4

REPORT INFORMATION
  Report Type: 
  Country: None (occurrence: None)
  Receive Date: 20041119
  Receipt Date: 20040909
  Transmission Date: 20050328
  Serious: Yes (Life-Threatening, Hospitalization)
  Sender: FDA-Public Use
  Company Number: 805#1#2004-00023

PATIENT
  Age: 60 Year
  Sex: Female

DRUGS (5)
  1. PROSTANDIN-I.V. (ALPROSTADIL (PAOD)) [Suspect]
     Indication: CARDIOVASCULAR DISORDER
     Dosage: 1.80 MCG (40MCG 2 IN 1 DAY (S)) INTRAVENOUS DRIP
     Route: 041
     Dates: start: 20040824, end: 20040830
  2. PROSTANDIN-I.V. (ALPROSTADIL (PAOD)) [Suspect]
     Indication: CONTUSION
     Dosage: 1.80 MCG (40MCG 2 IN 1 DAY (S)) INTRAVENOUS DRIP
     Route: 041
     Dates: start: 20040824, end: 20040830
  3. SODIUM BICARBONATE IN PLASTIC CONTAINER [Suspect]
     Dosage: 200 ML (100ML 2 IN 1 DAY (S)) INTRAVENOUS DRIP
     Route: 041
     Dates: start: 20040824, end: 20040830
  4. MECOBALAMIN (MECOBALAMIN) [Concomitant]
  5. LOXOPROFEN SODIUM (LOXOPROFEN SODIUM) [Concomitant]

REACTIONS (15)
  - ALANINE AMINOTRANSFERASE INCREASED [None]
  - ASPARTATE AMINOTRANSFERASE INCREASED [None]
  - BLOOD ALKALINE PHOSPHATASE INCREASED [None]
  - BLOOD LACTATE DEHYDROGENASE INCREASED [None]
  - CHILLS [None]
  - DISSEMINATED INTRAVASCULAR COAGULATION [None]
  - FEELING ABNORMAL [None]
  - HEPATIC FUNCTION ABNORMAL [None]
  - INFLAMMATION [None]
  - INFUSION RELATED REACTION [None]
  - NAUSEA [None]
  - PROTHROMBIN TIME SHORTENED [None]
  - PYREXIA [None]
  - WHITE BLOOD CELL COUNT DECREASED [None]
  - WHITE BLOOD CELL COUNT INCREASED [None]
